FAERS Safety Report 9018750 (Version 1)
Quarter: 2013Q1

REPORT INFORMATION
  Report Type: Spontaneous
  Country: US (occurrence: US)
  Receive Date: 20130118
  Receipt Date: 20130118
  Transmission Date: 20140127
  Serious: No
  Sender: FDA-Public Use
  Company Number: US-ASTRAZENECA-2012SE81542

PATIENT
  Age: 80 Year
  Sex: Female

DRUGS (1)
  1. SYMBICORT PMDI [Suspect]
     Route: 055

REACTIONS (3)
  - Blood cholesterol increased [Unknown]
  - Dysphonia [Unknown]
  - Hypertension [Unknown]
